FAERS Safety Report 16094203 (Version 1)
Quarter: 2019Q1

REPORT INFORMATION
  Report Type: Spontaneous
  Country: PT (occurrence: PT)
  Receive Date: 20190320
  Receipt Date: 20190320
  Transmission Date: 20190418
  Serious: Yes (Other)
  Sender: FDA-Public Use
  Company Number: PT-AUROBINDO-AUR-APL-2019-015617

PATIENT

DRUGS (1)
  1. MELOXICAM. [Suspect]
     Active Substance: MELOXICAM
     Indication: DRUG PROVOCATION TEST
     Dosage: UNK
     Route: 048
     Dates: start: 201902

REACTIONS (4)
  - Pruritus [Recovered/Resolved]
  - Urticaria [Recovered/Resolved]
  - Lip oedema [Recovered/Resolved]
  - Oedema peripheral [Recovered/Resolved]

NARRATIVE: CASE EVENT DATE: 201902
